FAERS Safety Report 7671539-0 (Version None)
Quarter: 2011Q3

REPORT INFORMATION
  Report Type: 
  Country: None (occurrence: None)
  Receive Date: 20110809
  Receipt Date: 20110809
  Transmission Date: 20111222
  Serious: Yes (Other)
  Sender: FDA-Public Use
  Company Number: None

PATIENT
  Age: 22 Year
  Sex: Female
  Weight: 65.77 kg

DRUGS (2)
  1. YAZ [Suspect]
     Indication: AMENORRHOEA
     Dosage: 1 PILL/
     Route: 048
     Dates: start: 20060801, end: 20100615
  2. YAZ [Suspect]
     Indication: PREMENSTRUAL SYNDROME
     Dosage: 1 PILL/
     Route: 048
     Dates: start: 20060801, end: 20100615

REACTIONS (1)
  - BLOOD CHOLESTEROL INCREASED [None]
